FAERS Safety Report 10882046 (Version 1)
Quarter: 2015Q1

REPORT INFORMATION
  Report Type: Spontaneous
  Country: US (occurrence: None)
  Receive Date: 20150225
  Receipt Date: 20150225
  Transmission Date: 20150721
  Serious: Yes (Other)
  Sender: FDA-Public Use
  Company Number: None

PATIENT
  Age: 61 Year
  Sex: Male
  Weight: 92.99 kg

DRUGS (2)
  1. L-METHYLFOLATE CALCIUM [Suspect]
     Active Substance: LEVOMEFOLATE CALCIUM
     Indication: SUPPLEMENTATION THERAPY
     Dosage: 2 PILLS
     Route: 048
     Dates: start: 20150213, end: 20150224
  2. BRINTELLIX [Suspect]
     Active Substance: VORTIOXETINE HYDROBROMIDE
     Indication: MAJOR DEPRESSION
     Route: 048
     Dates: start: 20150131, end: 20150224

REACTIONS (3)
  - Depression suicidal [None]
  - Agitation [None]
  - Drug interaction [None]

NARRATIVE: CASE EVENT DATE: 20150218
